FAERS Safety Report 12358472 (Version 5)
Quarter: 2016Q3

REPORT INFORMATION
  Report Type: Spontaneous
  Country: US (occurrence: US)
  Receive Date: 20160512
  Receipt Date: 20160708
  Transmission Date: 20161109
  Serious: No
  Sender: FDA-Public Use
  Company Number: US-PFIZER INC-2016237092

PATIENT
  Age: 67 Year
  Sex: Female
  Weight: 83.9 kg

DRUGS (5)
  1. LYRICA [Suspect]
     Active Substance: PREGABALIN
     Indication: FIBROMYALGIA
     Dosage: 75 MG, 4X/DAY
     Route: 048
     Dates: start: 2015
  2. LYRICA [Suspect]
     Active Substance: PREGABALIN
     Indication: NEURALGIA
     Dosage: 75 MG, 3X/DAY
     Route: 048
     Dates: start: 201601
  3. LYRICA [Suspect]
     Active Substance: PREGABALIN
     Indication: MYALGIA
     Dosage: 75 MG, 4X/DAY (7 AM, 1 PM, 6 PM, 11 PM)
     Dates: start: 2010
  4. NORCO [Concomitant]
     Active Substance: ACETAMINOPHEN\HYDROCODONE BITARTRATE
     Dosage: 4X/DAY (HYDROCODONE BITARTRATE10MG,PARACETAMOL325MG)
     Dates: start: 2010
  5. NORCO [Concomitant]
     Active Substance: ACETAMINOPHEN\HYDROCODONE BITARTRATE
     Indication: PAIN
     Dosage: HYDROCODONE BITARTRATE10MG,PARACETAMOL325MG, 4 TIMES A DAY
     Route: 048
     Dates: start: 2015

REACTIONS (6)
  - Pain [Recovered/Resolved]
  - Off label use [Unknown]
  - Gait disturbance [Unknown]
  - Pain in extremity [Unknown]
  - Drug ineffective [Recovered/Resolved]
  - Intentional product misuse [Not Recovered/Not Resolved]

NARRATIVE: CASE EVENT DATE: 201601
